FAERS Safety Report 6630265-7 (Version None)
Quarter: 2010Q1

REPORT INFORMATION
  Report Type: 
  Country: None (occurrence: None)
  Receive Date: 20100311
  Receipt Date: 20100308
  Transmission Date: 20100710
  Serious: Yes (Other)
  Sender: FDA-Public Use
  Company Number: B0638143A

PATIENT
  Sex: Male
  Weight: 13.4 kg

DRUGS (1)
  1. AUGMENTIN '125' [Suspect]
     Indication: COUGH
     Dosage: 1UNIT SINGLE DOSE
     Route: 048
     Dates: start: 20100203, end: 20100203

REACTIONS (2)
  - OEDEMA [None]
  - URTICARIA [None]
